FAERS Safety Report 13027012 (Version 2)
Quarter: 2016Q4

REPORT INFORMATION
  Report Type: Spontaneous
  Country: JP (occurrence: JP)
  Receive Date: 20161214
  Receipt Date: 20161220
  Transmission Date: 20170207
  Serious: Yes (Other)
  Sender: FDA-Public Use
  Company Number: JP-TEVA-719764ISR

PATIENT
  Age: 52 Year
  Sex: Female

DRUGS (1)
  1. URSO [Suspect]
     Active Substance: URSODIOL
     Route: 048
     Dates: start: 201409, end: 201409

REACTIONS (1)
  - Drug eruption [Unknown]
